FAERS Safety Report 23638823 (Version 1)
Quarter: 2024Q1

REPORT INFORMATION
  Report Type: Spontaneous
  Country: DK (occurrence: None)
  Receive Date: 20240315
  Receipt Date: 20240315
  Transmission Date: 20240409
  Serious: Yes (Other)
  Sender: FDA-Public Use
  Company Number: 2024A057859

PATIENT
  Sex: Male
  Weight: 76 kg

DRUGS (3)
  1. QUETIAPINE [Suspect]
     Active Substance: QUETIAPINE
     Indication: Schizophrenia
     Dosage: DOSAGE: UNKNOWN STRENGTH: UNKNOWN
     Route: 048
     Dates: start: 2004, end: 2023
  2. NITRAZEPAM [Concomitant]
     Active Substance: NITRAZEPAM
     Indication: Schizophrenia
     Dates: start: 2009, end: 2019
  3. CITALOPRAM [Concomitant]
     Active Substance: CITALOPRAM HYDROBROMIDE
     Indication: Anxiety

REACTIONS (9)
  - Speech disorder [Recovering/Resolving]
  - Memory impairment [Not Recovered/Not Resolved]
  - Memory impairment [Not Recovered/Not Resolved]
  - Loss of consciousness [Not Recovered/Not Resolved]
  - Tremor [Not Recovered/Not Resolved]
  - Overweight [Recovered/Resolved]
  - Paresis [Recovering/Resolving]
  - Presyncope [Recovered/Resolved]
  - Weight increased [Recovered/Resolved]

NARRATIVE: CASE EVENT DATE: 20040101
